FAERS Safety Report 5639049-X (Version None)
Quarter: 2008Q1

REPORT INFORMATION
  Report Type: 
  Country: None (occurrence: None)
  Receive Date: 20080226
  Receipt Date: 20080125
  Transmission Date: 20080703
  Serious: Yes (Life-Threatening, Hospitalization)
  Sender: FDA-Public Use
  Company Number: CA-WYE-H02660708

PATIENT
  Sex: Male

DRUGS (5)
  1. PANTOPRAZOLE SODIUM [Suspect]
     Indication: GASTROOESOPHAGEAL REFLUX DISEASE
     Route: 048
     Dates: start: 20071126, end: 20080112
  2. ADVIL [Concomitant]
     Route: 048
     Dates: start: 20080102, end: 20080103
  3. ASPIRIN [Concomitant]
     Route: 048
  4. LIPITOR [Concomitant]
     Dosage: UNKNOWN
  5. ALTACE [Concomitant]
     Route: 048

REACTIONS (6)
  - DIARRHOEA [None]
  - MYALGIA [None]
  - NAUSEA [None]
  - NEPHRITIS INTERSTITIAL [None]
  - RENAL FAILURE [None]
  - VOMITING [None]
